FAERS Safety Report 24185073 (Version 1)
Quarter: 2024Q3

REPORT INFORMATION
  Report Type: Spontaneous
  Country: US (occurrence: None)
  Receive Date: 20240807
  Receipt Date: 20240807
  Transmission Date: 20241017
  Serious: Yes (Death)
  Sender: Public
  Company Number: None

PATIENT
  Age: 70 Year
  Sex: Male

DRUGS (1)
  1. JAKAFI [Suspect]
     Active Substance: RUXOLITINIB
     Dosage: 5 MG TWICE A DAY ORAL ?
     Route: 048
     Dates: start: 20240410

REACTIONS (1)
  - Death [None]

NARRATIVE: CASE EVENT DATE: 20240720
